FAERS Safety Report 9638196 (Version 1)
Quarter: 2013Q4

REPORT INFORMATION
  Report Type: Spontaneous
  Country: US (occurrence: US)
  Receive Date: 20131022
  Receipt Date: 20131022
  Transmission Date: 20140711
  Serious: Yes (Hospitalization)
  Sender: FDA-Public Use
  Company Number: US-B.I. PHARMACEUTICALS,INC./RIDGEFIELD-2013-BI-32847BP

PATIENT
  Age: 7 Decade
  Sex: Male

DRUGS (1)
  1. PRADAXA [Suspect]
     Dates: end: 2013

REACTIONS (2)
  - Myocardial infarction [Recovered/Resolved]
  - Arterial occlusive disease [Recovered/Resolved]
